FAERS Safety Report 5502887-8 (Version None)
Quarter: 2007Q4

REPORT INFORMATION
  Report Type: 
  Country: None (occurrence: None)
  Receive Date: 20071031
  Receipt Date: 20071031
  Transmission Date: 20080405
  Serious: Yes (Other)
  Sender: FDA-Public Use
  Company Number: A0690688A

PATIENT
  Age: 54 Year
  Sex: Male

DRUGS (1)
  1. SOMINEX [Suspect]
     Route: 048

REACTIONS (1)
  - HALLUCINATION [None]
